FAERS Safety Report 18206426 (Version 2)
Quarter: 2020Q3

REPORT INFORMATION
  Report Type: Spontaneous
  Country: US (occurrence: US)
  Receive Date: 20200828
  Receipt Date: 20200903
  Transmission Date: 20201103
  Serious: Yes (Other)
  Sender: FDA-Public Use
  Company Number: US-PFIZER INC-2020332779

PATIENT
  Age: 16 Year
  Sex: Male

DRUGS (6)
  1. PENTOTHAL [Concomitant]
     Active Substance: THIOPENTAL SODIUM
     Dosage: UNK
  2. DEXAMETHASONE. [Concomitant]
     Active Substance: DEXAMETHASONE
     Dosage: 6 MG, 4X/DAY
  3. PAVULON [Concomitant]
     Active Substance: PANCURONIUM BROMIDE
     Dosage: UNK
     Route: 042
  4. MANNITOL. [Suspect]
     Active Substance: MANNITOL
     Dosage: UNK, EVERY 4 HRS ((50 TO 100 G), ULTIMATELY RECEIVING 400 G THE FIRST AND 450 G THE SECOND)
     Route: 042
  5. CIMETIDINE HYDROCHLORIDE. [Concomitant]
     Active Substance: CIMETIDINE HYDROCHLORIDE
     Dosage: 300 MG, 3X/DAY
  6. MANNITOL. [Suspect]
     Active Substance: MANNITOL
     Dosage: 50 G
     Route: 042

REACTIONS (1)
  - Acute kidney injury [Recovered/Resolved]
